FAERS Safety Report 20426222 (Version 1)
Quarter: 2022Q1

REPORT INFORMATION
  Report Type: Spontaneous
  Country: ES (occurrence: ES)
  Receive Date: 20220204
  Receipt Date: 20220204
  Transmission Date: 20220423
  Serious: No
  Sender: FDA-Public Use
  Company Number: ES-EXELIXIS-CABO-21041484

PATIENT
  Age: 63 Year
  Sex: Male

DRUGS (1)
  1. CABOMETYX [Suspect]
     Active Substance: CABOZANTINIB S-MALATE
     Indication: Renal cell carcinoma
     Dosage: 60 MG, QD
     Route: 048

REACTIONS (10)
  - Dermatitis allergic [Unknown]
  - Glossitis [Unknown]
  - Hypoproteinaemia [Unknown]
  - Proteinuria [Unknown]
  - Asthenia [Unknown]
  - Dysgeusia [Unknown]
  - Diarrhoea [Unknown]
  - Hypothyroidism [Unknown]
  - Hypoalbuminaemia [Unknown]
  - Dysphonia [Recovering/Resolving]
